FAERS Safety Report 10050298 (Version 3)
Quarter: 2014Q2

REPORT INFORMATION
  Report Type: Spontaneous
  Country: FR (occurrence: FR)
  Receive Date: 20140401
  Receipt Date: 20140508
  Transmission Date: 20141212
  Serious: Yes (Hospitalization, Other)
  Sender: FDA-Public Use
  Company Number: FR-INCYTE CORPORATION-2014IN000789

PATIENT
  Age: 85 Year
  Sex: Male

DRUGS (7)
  1. JAKAVI [Suspect]
     Indication: MYELOFIBROSIS
     Dosage: UNK
     Route: 048
     Dates: start: 20120727
  2. JAKAVI [Suspect]
     Dosage: 5 MG, BID
     Route: 048
     Dates: start: 20121227
  3. CAPTOPRIL [Concomitant]
  4. NEXIUM                             /01479302/ [Concomitant]
  5. KARDEGIC [Concomitant]
  6. SPIRIVA [Concomitant]
  7. IXPRIM [Concomitant]

REACTIONS (2)
  - Epilepsy [Unknown]
  - Neutropenia [Unknown]
